FAERS Safety Report 11287722 (Version 1)
Quarter: 2015Q3

REPORT INFORMATION
  Report Type: Spontaneous
  Country: US (occurrence: US)
  Receive Date: 20150721
  Receipt Date: 20150721
  Transmission Date: 20151125
  Serious: No
  Sender: FDA-Public Use
  Company Number: US-UNITED THERAPEUTICS-UNT-2015-001066

PATIENT
  Sex: Female
  Weight: 63.49 kg

DRUGS (2)
  1. REMODULIN [Suspect]
     Active Substance: TREPROSTINIL
     Indication: PULMONARY ARTERIAL HYPERTENSION
     Dosage: 0.05 ?G/KG/MIN, CONTINUING
     Route: 058
     Dates: start: 20131230
  2. ADCIRCA [Concomitant]
     Active Substance: TADALAFIL
     Indication: PRODUCT USED FOR UNKNOWN INDICATION
     Dosage: UNK

REACTIONS (10)
  - Chest pain [Recovering/Resolving]
  - Headache [Not Recovered/Not Resolved]
  - Therapy cessation [Recovered/Resolved]
  - Device dislocation [Recovered/Resolved]
  - Infusion site erythema [Unknown]
  - Diarrhoea [Unknown]
  - Pyrexia [Unknown]
  - Infusion site pain [Unknown]
  - Malaise [Unknown]
  - Palpitations [Recovering/Resolving]
